FAERS Safety Report 6231248-1 (Version None)
Quarter: 2009Q2

REPORT INFORMATION
  Report Type: 
  Country: None (occurrence: None)
  Receive Date: 20090611
  Receipt Date: 20090605
  Transmission Date: 20091009
  Serious: Yes (Hospitalization, Disabling)
  Sender: FDA-Public Use
  Company Number: WAES 0905FRA00087

PATIENT
  Age: 67 Year
  Sex: Female

DRUGS (4)
  1. CAP VORINOSTAT [Suspect]
     Indication: NON-SMALL CELL LUNG CANCER
     Dosage: 400 MG/DAILY PO
     Route: 048
     Dates: start: 20090512, end: 20090518
  2. GEMCITABINE [Suspect]
     Indication: NON-SMALL CELL LUNG CANCER
     Dosage: 1250 MG/KG/DAILY IV ; 1250 MG/KG/DAILY IV
     Route: 042
     Dates: start: 20090514, end: 20090514
  3. GEMCITABINE [Suspect]
     Indication: NON-SMALL CELL LUNG CANCER
     Dosage: 1250 MG/KG/DAILY IV ; 1250 MG/KG/DAILY IV
     Route: 042
     Dates: start: 20090525, end: 20090525
  4. CISPLATIN [Suspect]
     Indication: NON-SMALL CELL LUNG CANCER
     Dosage: 75 MG/KG/DAILY IV
     Route: 042
     Dates: start: 20090514, end: 20090514

REACTIONS (1)
  - PERIPHERAL ISCHAEMIA [None]
